FAERS Safety Report 14686611 (Version 2)
Quarter: 2018Q2

REPORT INFORMATION
  Report Type: Spontaneous
  Country: PL (occurrence: PL)
  Receive Date: 20180327
  Receipt Date: 20180416
  Transmission Date: 20180711
  Serious: Yes (Hospitalization)
  Sender: FDA-Public Use
  Company Number: PL-PFIZER INC-2018108681

PATIENT
  Age: 70 Year
  Sex: Female

DRUGS (6)
  1. PRESTARIUM [Concomitant]
     Active Substance: PERINDOPRIL
     Dosage: UNK
  2. DALACIN C [Suspect]
     Active Substance: CLINDAMYCIN PHOSPHATE
     Dosage: 300 MG, 3X/DAY (EVERY 8 HOURS)
     Dates: start: 20180305
  3. BISOCARD [Concomitant]
     Active Substance: BISOPROLOL
     Dosage: UNK
  4. EUTHYROX [Concomitant]
     Active Substance: LEVOTHYROXINE SODIUM
     Dosage: UNK
  5. PRAMOLAN [Concomitant]
     Dosage: SPORADICALLY
  6. DIURESIN [Concomitant]
     Active Substance: INDAPAMIDE
     Dosage: UNK

REACTIONS (11)
  - Head injury [Unknown]
  - Headache [Unknown]
  - Nasopharyngitis [Unknown]
  - Paraesthesia [Not Recovered/Not Resolved]
  - Blood pressure increased [Not Recovered/Not Resolved]
  - Amnesia [Unknown]
  - Chills [Not Recovered/Not Resolved]
  - Electrolyte imbalance [Unknown]
  - Piloerection [Not Recovered/Not Resolved]
  - Fall [Unknown]
  - Rash [Not Recovered/Not Resolved]

NARRATIVE: CASE EVENT DATE: 2018
